FAERS Safety Report 7916836-6 (Version None)
Quarter: 2011Q4

REPORT INFORMATION
  Report Type: 
  Country: None (occurrence: None)
  Receive Date: 20111116
  Receipt Date: 20111005
  Transmission Date: 20120403
  Serious: Yes (Other)
  Sender: FDA-Public Use
  Company Number: US-BAYER-2011-052734

PATIENT
  Age: 70 Year
  Sex: Female

DRUGS (3)
  1. NEXAVAR [Suspect]
     Indication: HEPATIC NEOPLASM MALIGNANT
     Dosage: 200 MG, BID
     Dates: start: 20110617, end: 20110627
  2. NEXAVAR [Suspect]
     Dosage: 400 MG, BID
  3. NEXAVAR [Suspect]
     Dosage: 200 MG, BID
     Route: 048
     Dates: start: 20110701

REACTIONS (8)
  - BLISTER [None]
  - FREQUENT BOWEL MOVEMENTS [None]
  - CHANGE OF BOWEL HABIT [None]
  - PAIN IN EXTREMITY [None]
  - RASH [None]
  - FAECES DISCOLOURED [None]
  - URINARY RETENTION [None]
  - HYPERTENSION [None]
